FAERS Safety Report 13329178 (Version 1)
Quarter: 2017Q1

REPORT INFORMATION
  Report Type: Spontaneous
  Country: IN (occurrence: IN)
  Receive Date: 20170313
  Receipt Date: 20170313
  Transmission Date: 20170428
  Serious: Yes (Other)
  Sender: FDA-Public Use
  Company Number: PHHY2017IN037343

PATIENT
  Age: 47 Year
  Sex: Female
  Weight: 74 kg

DRUGS (3)
  1. DYTOR [Concomitant]
     Active Substance: TORSEMIDE
     Indication: PRODUCT USED FOR UNKNOWN INDICATION
     Route: 048
  2. VYMADA [Suspect]
     Active Substance: SACUBITRIL\VALSARTAN
     Indication: CARDIAC FAILURE
     Dosage: 50 MG, BID
     Route: 048
     Dates: start: 20170305, end: 20170307
  3. ASPIRIN. [Concomitant]
     Active Substance: ASPIRIN
     Indication: PRODUCT USED FOR UNKNOWN INDICATION
     Dosage: 15 TO 20 DAYS
     Route: 065

REACTIONS (2)
  - Pruritus [Recovered/Resolved with Sequelae]
  - Rash [Recovered/Resolved with Sequelae]

NARRATIVE: CASE EVENT DATE: 20170306
